FAERS Safety Report 4320225-3 (Version None)
Quarter: 2004Q1

REPORT INFORMATION
  Report Type: 
  Country: None (occurrence: None)
  Receive Date: 20040317
  Receipt Date: 20040308
  Transmission Date: 20041129
  Serious: Yes (Life-Threatening, Hospitalization, Disabling)
  Sender: FDA-Public Use
  Company Number: 2004AP01461

PATIENT
  Age: 77 Year

DRUGS (1)
  1. IRESSA [Suspect]
     Dosage: 250 MG DAILY PO
     Route: 048
     Dates: start: 20031020, end: 20031120

REACTIONS (4)
  - CONDITION AGGRAVATED [None]
  - CYSTITIS HAEMORRHAGIC [None]
  - HEPATIC FUNCTION ABNORMAL [None]
  - INTERSTITIAL LUNG DISEASE [None]
